FAERS Safety Report 10509979 (Version 1)
Quarter: 2014Q4

REPORT INFORMATION
  Report Type: Spontaneous
  Country: US (occurrence: None)
  Receive Date: 20141008
  Receipt Date: 20141008
  Transmission Date: 20150528
  Serious: Yes (Death, Hospitalization)
  Sender: FDA-Public Use
  Company Number: CPI 6410

PATIENT
  Age: 27 Year

DRUGS (3)
  1. N-ACETYLCYSTEINE [Suspect]
     Active Substance: ACETYLCYSTEINE
     Indication: ASPARTATE AMINOTRANSFERASE INCREASED
  2. N-ACETYLCYSTEINE [Suspect]
     Active Substance: ACETYLCYSTEINE
     Indication: ALANINE AMINOTRANSFERASE INCREASED
  3. ACETAMINOPHEN. [Suspect]
     Active Substance: ACETAMINOPHEN
     Dosage: TABLETS
     Route: 048

REACTIONS (4)
  - Acute respiratory distress syndrome [None]
  - Hepatic necrosis [None]
  - Renal tubular necrosis [None]
  - Acute hepatic failure [None]
